FAERS Safety Report 6746758-8 (Version None)
Quarter: 2010Q2

REPORT INFORMATION
  Report Type: 
  Country: None (occurrence: None)
  Receive Date: 20100528
  Receipt Date: 20090811
  Transmission Date: 20101027
  Serious: No
  Sender: FDA-Public Use
  Company Number: A0801635A

PATIENT
  Age: 54 Year
  Sex: Female

DRUGS (10)
  1. VENTOLIN [Suspect]
     Indication: PLEURISY
     Route: 055
     Dates: start: 20090601
  2. CLARITIN [Concomitant]
  3. GLIPIZIDE [Concomitant]
  4. GLUCOPHAGE [Concomitant]
  5. CELEXA [Concomitant]
  6. CALCIUM WITH VITAMIN D [Concomitant]
  7. LISINOPRIL [Concomitant]
  8. VYTORIN [Concomitant]
  9. TIAZAC [Concomitant]
  10. VITAMIN C [Concomitant]

REACTIONS (2)
  - DRUG INEFFECTIVE [None]
  - OVERDOSE [None]
